FAERS Safety Report 14371716 (Version 7)
Quarter: 2018Q1

REPORT INFORMATION
  Report Type: Spontaneous
  Country: US (occurrence: US)
  Receive Date: 20180110
  Receipt Date: 20180316
  Transmission Date: 20180509
  Serious: Yes (Hospitalization, Other)
  Sender: FDA-Public Use
  Company Number: US-UNITED THERAPEUTICS-UNT-2018-000167

PATIENT
  Age: 55 Year
  Sex: Female
  Weight: 121.54 kg

DRUGS (4)
  1. SILDENAFIL CITRATE. [Concomitant]
     Active Substance: SILDENAFIL CITRATE
     Indication: PRODUCT USED FOR UNKNOWN INDICATION
     Route: 065
  2. REMODULIN [Suspect]
     Active Substance: TREPROSTINIL
     Indication: PULMONARY ARTERIAL HYPERTENSION
     Dosage: 0.0201 ?G/KG, CONTINUING
     Route: 058
     Dates: start: 20170512
  3. AMLODIPINE [Concomitant]
     Active Substance: AMLODIPINE BESYLATE
     Indication: PRODUCT USED FOR UNKNOWN INDICATION
     Route: 065
  4. REMODULIN [Suspect]
     Active Substance: TREPROSTINIL
     Indication: PULMONARY HYPERTENSION
     Dosage: 0.0253 ?G/KG, CONTINUING
     Route: 058
     Dates: start: 20180129

REACTIONS (8)
  - Viral infection [Unknown]
  - Transient ischaemic attack [Unknown]
  - Drug titration error [Unknown]
  - Vomiting [Unknown]
  - Herpes zoster [Unknown]
  - Nausea [Unknown]
  - Cellulitis [Unknown]
  - Diarrhoea [Unknown]

NARRATIVE: CASE EVENT DATE: 20180104
